FAERS Safety Report 7635620-4 (Version None)
Quarter: 2011Q3

REPORT INFORMATION
  Report Type: 
  Country: None (occurrence: None)
  Receive Date: 20110726
  Receipt Date: 20110715
  Transmission Date: 20111222
  Serious: Yes (Hospitalization)
  Sender: FDA-Public Use
  Company Number: PHHY2011AU64503

PATIENT
  Age: 22 Year
  Sex: Female

DRUGS (4)
  1. LITHIUM CARBONATE [Concomitant]
     Dosage: 1500 MG, QD
  2. RISPERIDONE [Concomitant]
     Dosage: 2 MG, QD
  3. CARBAMAZEPINE [Suspect]
     Dosage: 400 MG, QD
  4. CARBAMAZEPINE [Suspect]
     Dosage: 100 MG, QD

REACTIONS (25)
  - LYMPHADENOPATHY [None]
  - LYMPHOCYTOSIS [None]
  - TACHYCARDIA [None]
  - DRUG RASH WITH EOSINOPHILIA AND SYSTEMIC SYMPTOMS [None]
  - EXERCISE TOLERANCE DECREASED [None]
  - RASH MACULO-PAPULAR [None]
  - LETHARGY [None]
  - MYALGIA [None]
  - RASH PRURITIC [None]
  - HEPATOSPLENOMEGALY [None]
  - INFLAMMATION [None]
  - CYTOMEGALOVIRUS INFECTION [None]
  - CHILLS [None]
  - HYPERSENSITIVITY [None]
  - SWELLING FACE [None]
  - PERIORBITAL OEDEMA [None]
  - RUBELLA [None]
  - DERMATITIS CONTACT [None]
  - PYREXIA [None]
  - ALANINE AMINOTRANSFERASE INCREASED [None]
  - BLOOD ALKALINE PHOSPHATASE INCREASED [None]
  - SKIN EXFOLIATION [None]
  - NIGHT SWEATS [None]
  - RASH [None]
  - BLOOD ALBUMIN DECREASED [None]
